FAERS Safety Report 26072765 (Version 1)
Quarter: 2025Q4

REPORT INFORMATION
  Report Type: Report from Study
  Country: US (occurrence: US)
  Receive Date: 20251121
  Receipt Date: 20251121
  Transmission Date: 20260117
  Serious: Yes (Hospitalization)
  Sender: ABBVIE
  Company Number: US-ABBVIE-6441680

PATIENT
  Age: 71 Year
  Sex: Female

DRUGS (1)
  1. HUMIRA [Suspect]
     Active Substance: ADALIMUMAB
     Indication: Psoriasis
     Dosage: SOLUTION FOR INJECTION IN PRE-FILLED PEN
     Route: 058
     Dates: start: 202507

REACTIONS (4)
  - Myocardial oedema [Recovering/Resolving]
  - Pulmonary oedema [Recovering/Resolving]
  - Drug ineffective [Unknown]
  - Pruritus [Not Recovered/Not Resolved]

NARRATIVE: CASE EVENT DATE: 20250101
